FAERS Safety Report 20404506 (Version 1)
Quarter: 2022Q1

REPORT INFORMATION
  Report Type: Spontaneous
  Country: IN (occurrence: IN)
  Receive Date: 20220131
  Receipt Date: 20220131
  Transmission Date: 20220423
  Serious: Yes (Other)
  Sender: FDA-Public Use
  Company Number: IN-ASTELLAS-2022US002845

PATIENT
  Sex: Male

DRUGS (10)
  1. TACROLIMUS [Suspect]
     Active Substance: TACROLIMUS
     Indication: Renal transplant
     Route: 065
     Dates: start: 2019
  2. TACROLIMUS [Suspect]
     Active Substance: TACROLIMUS
     Route: 065
     Dates: start: 2020, end: 2020
  3. TACROLIMUS [Suspect]
     Active Substance: TACROLIMUS
     Route: 065
     Dates: start: 2020, end: 2020
  4. TACROLIMUS [Suspect]
     Active Substance: TACROLIMUS
     Route: 065
     Dates: start: 2020, end: 2020
  5. TACROLIMUS [Suspect]
     Active Substance: TACROLIMUS
     Route: 065
     Dates: start: 2020, end: 2020
  6. TACROLIMUS [Suspect]
     Active Substance: TACROLIMUS
     Dosage: 0.5 MG, ONCE DAILY
     Route: 065
  7. PREDNISOLONE [Concomitant]
     Active Substance: PREDNISOLONE
     Indication: Renal transplant
     Route: 065
     Dates: start: 2019
  8. MYCOPHENOLIC ACID [Concomitant]
     Active Substance: MYCOPHENOLIC ACID
     Indication: Renal transplant
     Route: 065
     Dates: start: 2019
  9. THYMOCYTE IMMUNE GLOBULIN NOS [Concomitant]
     Active Substance: THYMOCYTE IMMUNE GLOBULIN NOS
     Indication: Renal transplant
     Route: 042
     Dates: start: 2020
  10. RITUXIMAB [Concomitant]
     Active Substance: RITUXIMAB
     Indication: Product used for unknown indication
     Route: 065
     Dates: start: 2019

REACTIONS (4)
  - Inflammatory bowel disease [Recovering/Resolving]
  - Colitis ulcerative [Recovering/Resolving]
  - Wound infection [Recovering/Resolving]
  - New onset diabetes after transplantation [Unknown]

NARRATIVE: CASE EVENT DATE: 20200101
